FAERS Safety Report 14769823 (Version 4)
Quarter: 2019Q2

REPORT INFORMATION
  Report Type: Spontaneous
  Country: US (occurrence: US)
  Receive Date: 20180417
  Receipt Date: 20190417
  Transmission Date: 20190711
  Serious: Yes (Hospitalization, Other)
  Sender: FDA-Public Use
  Company Number: US-GLAXOSMITHKLINE-US2018GSK066172

PATIENT
  Sex: Male

DRUGS (2)
  1. PREVACID [Suspect]
     Active Substance: LANSOPRAZOLE
     Indication: PRODUCT USED FOR UNKNOWN INDICATION
     Dosage: 30 MG, QD
     Route: 065
  2. PREVACID [Suspect]
     Active Substance: LANSOPRAZOLE
     Indication: PRODUCT USED FOR UNKNOWN INDICATION
     Dosage: 15 MG, QD
     Route: 065

REACTIONS (9)
  - Pelvi-ureteric obstruction [Unknown]
  - Hydronephrosis [Unknown]
  - Pyelonephritis [Unknown]
  - Urosepsis [Unknown]
  - Renal injury [Unknown]
  - Urethral meatus stenosis [Unknown]
  - Chronic kidney disease [Unknown]
  - Kidney infection [Unknown]
  - Obstructive nephropathy [Unknown]
